FAERS Safety Report 4817367-2 (Version None)
Quarter: 2005Q3

REPORT INFORMATION
  Report Type: 
  Country: None (occurrence: None)
  Receive Date: 20050929
  Receipt Date: 20050609
  Transmission Date: 20060218
  Serious: No
  Sender: FDA-Public Use
  Company Number: 05P-163-0293315-00

PATIENT
  Age: 75 Year
  Sex: Female
  Weight: 65.318 kg

DRUGS (7)
  1. HUMIRA [Suspect]
     Indication: RHEUMATOID ARTHRITIS
     Dosage: 40 MG, 1 IN 2 WK, SUBCUTANEOUS; 40 MG, 1 IN 2 WK, SUBCUTANEOUS
     Route: 058
     Dates: start: 20040126, end: 20050228
  2. HUMIRA [Suspect]
     Indication: RHEUMATOID ARTHRITIS
     Dosage: 40 MG, 1 IN 2 WK, SUBCUTANEOUS; 40 MG, 1 IN 2 WK, SUBCUTANEOUS
     Route: 058
     Dates: start: 20050401
  3. PREDNISONE [Concomitant]
  4. METHOTREXATE [Concomitant]
  5. LEVOTHYROXINE SODIUM [Concomitant]
  6. ESOMEPRAZOLE [Concomitant]
  7. RANITIDINE HYDROCHLORIDE [Concomitant]

REACTIONS (3)
  - COUGH [None]
  - PULMONARY FIBROSIS [None]
  - SKIN BURNING SENSATION [None]
